FAERS Safety Report 9494203 (Version 1)
Quarter: 2013Q3

REPORT INFORMATION
  Report Type: Spontaneous
  Country: GB (occurrence: GB)
  Receive Date: 20130903
  Receipt Date: 20130903
  Transmission Date: 20140515
  Serious: Yes (Hospitalization, Other)
  Sender: FDA-Public Use
  Company Number: GB-ACCORD-019130

PATIENT
  Age: 47 Year
  Sex: Female

DRUGS (8)
  1. ASPIRIN [Concomitant]
  2. SERTRALINE [Concomitant]
  3. RAMIPRIL [Concomitant]
  4. OMEPRAZOLE [Concomitant]
  5. QUETIAPINE FUMARATE [Suspect]
     Indication: PRODUCT USED FOR UNKNOWN INDICATION
     Dosage: AT NIGHT.
     Route: 048
  6. MIRTAZAPINE [Concomitant]
  7. BISOPROLOL [Concomitant]
  8. LORATADINE [Concomitant]

REACTIONS (1)
  - Pericarditis [Unknown]
